FAERS Safety Report 16581637 (Version 1)
Quarter: 2019Q3

REPORT INFORMATION
  Report Type: Not Available
  Country: US (occurrence: US)
  Receive Date: 20190716
  Receipt Date: 20190716
  Transmission Date: 20191004
  Serious: No
  Sender: FDA-Public Use
  Company Number: US-NEUROCRINE BIOSCIENCES INC.-2019NBI01827

PATIENT
  Age: 66 Year
  Sex: Female
  Weight: 72.64 kg

DRUGS (7)
  1. IMIPRAMINE [Concomitant]
     Active Substance: IMIPRAMINE
     Dosage: EVERY NIGHT
  2. MAGNESIUM [Concomitant]
     Active Substance: MAGNESIUM
     Indication: PAIN
  3. INGREZZA [Suspect]
     Active Substance: VALBENAZINE
     Indication: TARDIVE DYSKINESIA
     Dates: start: 20190625
  4. IMIPRAMINE [Concomitant]
     Active Substance: IMIPRAMINE
     Indication: DEPRESSION
     Dates: end: 2016
  5. CURCUMIN [Concomitant]
     Active Substance: CURCUMIN
     Indication: PAIN
     Dosage: EVERY MORNING
  6. IMIPRAMINE [Concomitant]
     Active Substance: IMIPRAMINE
  7. IMIPRAMINE [Concomitant]
     Active Substance: IMIPRAMINE

REACTIONS (4)
  - Somnolence [Not Recovered/Not Resolved]
  - Dizziness [Not Recovered/Not Resolved]
  - Feeling abnormal [Not Recovered/Not Resolved]
  - Fatigue [Not Recovered/Not Resolved]

NARRATIVE: CASE EVENT DATE: 20190628
